FAERS Safety Report 7635028-1 (Version None)
Quarter: 2011Q3

REPORT INFORMATION
  Report Type: 
  Country: None (occurrence: None)
  Receive Date: 20110718
  Receipt Date: 20110705
  Transmission Date: 20111222
  Serious: Yes (Congenital Anomaly)
  Sender: FDA-Public Use
  Company Number: B0732769A

PATIENT
  Sex: Female

DRUGS (2)
  1. PROPYLTHIOURACIL [Suspect]
     Indication: HYPERTHYROIDISM
     Dosage: TRANSPLACENTARY
     Route: 064
  2. PROPRANOLOL HYDROCHLORIDE [Suspect]
     Dosage: TRANSPLACENTARY
     Route: 064

REACTIONS (2)
  - PYLORIC STENOSIS [None]
  - MATERNAL DRUGS AFFECTING FOETUS [None]
